FAERS Safety Report 14072289 (Version 2)
Quarter: 2018Q3

REPORT INFORMATION
  Report Type: Spontaneous
  Country: US (occurrence: US)
  Receive Date: 20171010
  Receipt Date: 20180824
  Transmission Date: 20181010
  Serious: No
  Sender: FDA-Public Use
  Company Number: US-SA-2017SA180102

PATIENT
  Age: 33 Year
  Sex: Male

DRUGS (1)
  1. DUPIXENT [Suspect]
     Active Substance: DUPILUMAB
     Indication: DERMATITIS
     Dosage: 300 MG,QOW
     Route: 058
     Dates: start: 201705

REACTIONS (2)
  - Skin disorder [Unknown]
  - Conjunctivitis [Unknown]

NARRATIVE: CASE EVENT DATE: 201706
